FAERS Safety Report 10026787 (Version 1)
Quarter: 2014Q1

REPORT INFORMATION
  Report Type: Spontaneous
  Country: CN (occurrence: None)
  Receive Date: 20140318
  Receipt Date: 20140318
  Transmission Date: 20141002
  Serious: Yes (Life-Threatening, Other)
  Sender: FDA-Public Use
  Company Number: 2014P1002017

PATIENT
  Age: 74 Year
  Sex: Male
  Weight: 85 kg

DRUGS (4)
  1. FENTANYL [Suspect]
     Indication: GENERAL ANAESTHESIA
  2. PROPOFOL [Concomitant]
  3. ROCURONIUM [Concomitant]
  4. SEVOFLURANE [Concomitant]

REACTIONS (4)
  - Upper airway obstruction [None]
  - Muscle rigidity [None]
  - Oxygen saturation decreased [None]
  - Joint range of motion decreased [None]
